FAERS Safety Report 17053196 (Version 2)
Quarter: 2019Q4

REPORT INFORMATION
  Report Type: Report from Study
  Country: GR (occurrence: GR)
  Receive Date: 20191120
  Receipt Date: 20191126
  Transmission Date: 20200122
  Serious: Yes (Other)
  Sender: FDA-Public Use
  Company Number: GR-PFIZER INC-2019494900

PATIENT
  Age: 24 Year
  Sex: Male

DRUGS (1)
  1. LEVETIRACETAM. [Suspect]
     Active Substance: LEVETIRACETAM
     Indication: SEIZURE
     Dosage: 1 G, 2X/DAY

REACTIONS (3)
  - Central nervous system lesion [Recovering/Resolving]
  - Multiple sclerosis relapse [Recovering/Resolving]
  - Spinal cord disorder [Recovering/Resolving]
